FAERS Safety Report 21910994 (Version 2)
Quarter: 2023Q2

REPORT INFORMATION
  Report Type: Report from Study
  Country: JP (occurrence: None)
  Receive Date: 20230125
  Receipt Date: 20230403
  Transmission Date: 20230721
  Serious: Yes (Disabling)
  Sender: FDA-Public Use
  Company Number: JP-Merck Healthcare KGaA-9360546

PATIENT
  Age: 78 Year
  Sex: Female
  Weight: 48 kg

DRUGS (5)
  1. BAVENCIO [Suspect]
     Active Substance: AVELUMAB
     Indication: Renal cancer
     Route: 041
     Dates: start: 20220208, end: 20220405
  2. INLYTA [Concomitant]
     Active Substance: AXITINIB
     Indication: Renal cancer
     Route: 048
     Dates: start: 20220208, end: 20220405
  3. ACETAMINOPHEN [Concomitant]
     Active Substance: ACETAMINOPHEN
     Indication: Premedication
     Route: 041
     Dates: start: 20220208, end: 20220405
  4. POLARAMINE [Concomitant]
     Active Substance: DEXCHLORPHENIRAMINE MALEATE
     Indication: Premedication
     Route: 041
     Dates: start: 20220208, end: 20220405
  5. COVID-19 VACCINE [Concomitant]
     Indication: Product used for unknown indication

REACTIONS (1)
  - Status epilepticus [Recovered/Resolved with Sequelae]

NARRATIVE: CASE EVENT DATE: 20220411
